FAERS Safety Report 9721794 (Version 1)
Quarter: 2013Q4

REPORT INFORMATION
  Report Type: Spontaneous
  Country: US (occurrence: US)
  Receive Date: 20131201
  Receipt Date: 20131201
  Transmission Date: 20140711
  Serious: No
  Sender: FDA-Public Use
  Company Number: US-ABBVIE-13P-163-1155850-00

PATIENT
  Age: 64 Year
  Sex: Male
  Weight: 115.77 kg

DRUGS (6)
  1. ANDROGEL [Suspect]
     Indication: BLOOD TESTOSTERONE DECREASED
     Dates: start: 201306, end: 201308
  2. ANDROGEL [Suspect]
     Dates: start: 201308, end: 20131005
  3. CRESTOR [Concomitant]
     Indication: BLOOD CHOLESTEROL INCREASED
  4. BYETTA [Concomitant]
     Indication: BLOOD GLUCOSE
  5. GLUCOPHAGE [Concomitant]
     Indication: BLOOD GLUCOSE
  6. LOSARTIN [Concomitant]
     Indication: HYPERTENSION

REACTIONS (2)
  - Prostatitis [Recovering/Resolving]
  - Blood testosterone decreased [Not Recovered/Not Resolved]
